FAERS Safety Report 8061007-9 (Version None)
Quarter: 2012Q1

REPORT INFORMATION
  Report Type: 
  Country: None (occurrence: None)
  Receive Date: 20120120
  Receipt Date: 20120112
  Transmission Date: 20120608
  Serious: Yes (Other)
  Sender: FDA-Public Use
  Company Number: CHPA2012US001186

PATIENT
  Age: 56 Year
  Sex: Female

DRUGS (2)
  1. LEXAPRO [Concomitant]
  2. EXCEDRIN TENSION HEADACHE CAPLETS [Suspect]
     Indication: HEADACHE
     Dosage: 6 DF, QD
     Route: 048
     Dates: start: 20060101

REACTIONS (4)
  - RESTLESSNESS [None]
  - DRUG DEPENDENCE [None]
  - DIZZINESS [None]
  - INTENTIONAL DRUG MISUSE [None]
